FAERS Safety Report 7644565-5 (Version None)
Quarter: 2011Q3

REPORT INFORMATION
  Report Type: 
  Country: None (occurrence: None)
  Receive Date: 20110729
  Receipt Date: 20110715
  Transmission Date: 20111222
  Serious: Yes (Life-Threatening, Hospitalization)
  Sender: FDA-Public Use
  Company Number: US-PFIZER INC-2011168150

PATIENT
  Age: 27 Year
  Sex: Male

DRUGS (3)
  1. FLEXERIL [Suspect]
     Indication: BACK PAIN
     Dosage: 10 MG, 30 TABLETS
     Route: 065
  2. IBUPROFEN [Suspect]
     Indication: BACK PAIN
     Dosage: 800 MG, 20 TABLETS
     Route: 065
  3. ULTRACET [Suspect]
     Indication: BACK PAIN
     Dosage: 20 TABLETS
     Route: 065
     Dates: end: 20110124

REACTIONS (3)
  - MULTIPLE DRUG OVERDOSE [None]
  - UNRESPONSIVE TO STIMULI [None]
  - INTENTIONAL DRUG MISUSE [None]
